FAERS Safety Report 13441227 (Version 4)
Quarter: 2017Q4

REPORT INFORMATION
  Report Type: Report from Study
  Country: US (occurrence: US)
  Receive Date: 20170413
  Receipt Date: 20171219
  Transmission Date: 20180320
  Serious: No
  Sender: FDA-Public Use
  Company Number: PHEH2017US010820

PATIENT
  Sex: Male

DRUGS (8)
  1. ILARIS [Suspect]
     Active Substance: CANAKINUMAB
     Indication: PRODUCT USED FOR UNKNOWN INDICATION
     Dosage: UNK
     Route: 065
  2. ILARIS [Suspect]
     Active Substance: CANAKINUMAB
     Dosage: UNK, EVERY 4 WEEKS
     Route: 065
     Dates: start: 20170701
  3. ILARIS [Suspect]
     Active Substance: CANAKINUMAB
     Dosage: UNK, EVERY 4 WEEKS
     Route: 065
     Dates: start: 20170520
  4. ILARIS [Suspect]
     Active Substance: CANAKINUMAB
     Dosage: UNK, EVERY 4 WEEKS
     Route: 065
     Dates: start: 20170408
  5. ILARIS [Suspect]
     Active Substance: CANAKINUMAB
     Dosage: UNK, EVERY 5 WEEKS
     Route: 065
     Dates: start: 20171102
  6. ILARIS [Suspect]
     Active Substance: CANAKINUMAB
     Dosage: UNK, EVERY 4 WEEKS
     Route: 065
     Dates: start: 20170225
  7. ILARIS [Suspect]
     Active Substance: CANAKINUMAB
     Dosage: UNK, EVERY 5 WEEKS
     Route: 065
     Dates: start: 20170921
  8. ILARIS [Suspect]
     Active Substance: CANAKINUMAB
     Dosage: UNK, EVERY 5 WEEKS
     Route: 065
     Dates: start: 20171213

REACTIONS (1)
  - Inappropriate schedule of drug administration [Unknown]
